FAERS Safety Report 25300670 (Version 1)
Quarter: 2025Q2

REPORT INFORMATION
  Report Type: Spontaneous
  Country: US (occurrence: None)
  Receive Date: 20250509
  Receipt Date: 20250509
  Transmission Date: 20250716
  Serious: Yes (Other)
  Sender: FDA-CTU
  Company Number: None

PATIENT
  Age: 80 Year
  Sex: Female

DRUGS (1)
  1. XOLAIR PFS [Suspect]
     Active Substance: OMALIZUMAB
     Indication: Generalised pustular psoriasis
     Dosage: 300MG EVERY 4 WEEKS ?
     Dates: start: 20230103

REACTIONS (1)
  - Bladder neoplasm [None]

NARRATIVE: CASE EVENT DATE: 20250509
